FAERS Safety Report 10306080 (Version 1)
Quarter: 2014Q3

REPORT INFORMATION
  Report Type: Spontaneous
  Country: DE (occurrence: DE)
  Receive Date: 20140715
  Receipt Date: 20140715
  Transmission Date: 20150326
  Serious: Yes (Congenital Anomaly)
  Sender: FDA-Public Use
  Company Number: DE-GLAXOSMITHKLINE-D0084771A

PATIENT
  Sex: Male

DRUGS (7)
  1. FOLIC ACID. [Concomitant]
     Active Substance: FOLIC ACID
     Indication: PROPHYLAXIS OF NEURAL TUBE DEFECT
     Dosage: .8MG PER DAY
     Route: 064
     Dates: start: 20130517, end: 20140109
  2. SALBUTAMOL [Suspect]
     Active Substance: ALBUTEROL
     Indication: ASTHMA
     Route: 064
     Dates: start: 20130327, end: 20130618
  3. TETRAZEPAM [Suspect]
     Active Substance: TETRAZEPAM
     Indication: HYPOTONIA
     Dosage: 50MG PER DAY
     Route: 064
  4. CELEBREX [Suspect]
     Active Substance: CELECOXIB
     Indication: SPONDYLOLISTHESIS
     Dosage: 200MG PER DAY
     Route: 064
  5. PROSTAGLANDIN [Concomitant]
     Indication: LABOUR INDUCTION
     Route: 064
     Dates: start: 20140109, end: 20140109
  6. VIANI [Suspect]
     Active Substance: FLUTICASONE PROPIONATE\SALMETEROL XINAFOATE
     Indication: ASTHMA
     Route: 064
  7. IBUPROFEN. [Suspect]
     Active Substance: IBUPROFEN
     Indication: SPONDYLOLISTHESIS
     Dosage: 800MG THREE TIMES PER DAY
     Route: 064

REACTIONS (3)
  - Foetal exposure during pregnancy [Unknown]
  - Transposition of the great vessels [Recovered/Resolved with Sequelae]
  - Ventricular septal defect [Recovered/Resolved with Sequelae]
